FAERS Safety Report 17988215 (Version 1)
Quarter: 2020Q3

REPORT INFORMATION
  Report Type: Report from Study
  Country: DE (occurrence: DE)
  Receive Date: 20200707
  Receipt Date: 20200707
  Transmission Date: 20201103
  Serious: Yes (Hospitalization)
  Sender: FDA-Public Use
  Company Number: DE-ROCHE-2633187

PATIENT
  Sex: Female
  Weight: 55 kg

DRUGS (1)
  1. OBINUTUZUMAB. [Suspect]
     Active Substance: OBINUTUZUMAB
     Indication: MARGINAL ZONE LYMPHOMA
     Dosage: 900 MILLIGRAM IN CYCLICAL?DATE OF LAST DOSE GIVEN PRIOR TO FEVER AND CHILLS: 16/JUN/2020
     Route: 042
     Dates: start: 20200616

REACTIONS (2)
  - Cytokine release syndrome [Not Recovered/Not Resolved]
  - Thrombocytopenia [Recovered/Resolved]

NARRATIVE: CASE EVENT DATE: 20200619
